FAERS Safety Report 21920107 (Version 1)
Quarter: 2023Q1

REPORT INFORMATION
  Report Type: Spontaneous
  Country: BE (occurrence: BE)
  Receive Date: 20230127
  Receipt Date: 20230127
  Transmission Date: 20230418
  Serious: Yes (Other)
  Sender: FDA-Public Use
  Company Number: BE-FreseniusKabi-FK202300511

PATIENT
  Age: 59 Year
  Sex: Female
  Weight: 53.9 kg

DRUGS (3)
  1. PACLITAXEL [Suspect]
     Active Substance: PACLITAXEL
     Indication: Oesophageal carcinoma
     Dosage: UNK
     Route: 042
     Dates: start: 20221217, end: 20221217
  2. PACLITAXEL [Suspect]
     Active Substance: PACLITAXEL
     Dosage: 270 MG, CYCLIC, EVERY 21 DAYS IN 3H
     Route: 042
     Dates: start: 20230109, end: 20230109
  3. CARBOPLATIN [Concomitant]
     Active Substance: CARBOPLATIN
     Indication: Oesophageal carcinoma
     Dosage: 272.5 MG, CYCLIC, EVERY 21 DAYS IN 30 MIN
     Route: 042

REACTIONS (6)
  - Hypersensitivity [Recovered/Resolved]
  - Chest discomfort [Recovered/Resolved]
  - Oxygen saturation decreased [Recovered/Resolved]
  - Renal pain [Recovered/Resolved]
  - Off label use [Unknown]
  - Overdose [Unknown]

NARRATIVE: CASE EVENT DATE: 20221217
